FAERS Safety Report 17834588 (Version 1)
Quarter: 2020Q2

REPORT INFORMATION
  Report Type: Spontaneous
  Country: US (occurrence: US)
  Receive Date: 20200528
  Receipt Date: 20200528
  Transmission Date: 20200714
  Serious: Yes (Death, Other)
  Sender: FDA-Public Use
  Company Number: None

PATIENT
  Age: 61 Year
  Sex: Female
  Weight: 48 kg

DRUGS (2)
  1. TOCILIZUMAB. [Concomitant]
     Active Substance: TOCILIZUMAB
     Dates: start: 20200521, end: 20200521
  2. REMDESIVIR. [Suspect]
     Active Substance: REMDESIVIR
     Indication: COVID-19
     Route: 041
     Dates: start: 20200518, end: 20200523

REACTIONS (4)
  - Aspartate aminotransferase increased [None]
  - Febrile neutropenia [None]
  - Alanine aminotransferase increased [None]
  - Respiratory failure [None]

NARRATIVE: CASE EVENT DATE: 20200523
